FAERS Safety Report 6298784-3 (Version None)
Quarter: 2009Q3

REPORT INFORMATION
  Report Type: 
  Country: None (occurrence: None)
  Receive Date: 20090805
  Receipt Date: 20090805
  Transmission Date: 20100115
  Serious: No
  Sender: FDA-Public Use
  Company Number: None

PATIENT
  Sex: Female
  Weight: 95.2554 kg

DRUGS (2)
  1. SINGULAIR [Suspect]
     Indication: BRONCHITIS
     Dosage: 10 MG 1 PER DAY
     Dates: start: 20090626, end: 20090716
  2. SINGULAIR [Suspect]
     Indication: RHINITIS
     Dosage: 10 MG 1 PER DAY
     Dates: start: 20090626, end: 20090716

REACTIONS (1)
  - PAIN IN EXTREMITY [None]
